FAERS Safety Report 12267463 (Version 1)
Quarter: 2016Q2

REPORT INFORMATION
  Report Type: Spontaneous
  Country: US (occurrence: None)
  Receive Date: 20160413
  Receipt Date: 20160413
  Transmission Date: 20160815
  Serious: Yes (Hospitalization)
  Sender: FDA-Public Use
  Company Number: None

PATIENT
  Age: 59 Year
  Sex: Male
  Weight: 74.1 kg

DRUGS (1)
  1. ATORVASTATIN [Suspect]
     Active Substance: ATORVASTATIN
     Indication: RHABDOMYOLYSIS
     Route: 048
     Dates: start: 20140306, end: 20160111

REACTIONS (3)
  - Myalgia [None]
  - Blood creatine phosphokinase increased [None]
  - Arthralgia [None]

NARRATIVE: CASE EVENT DATE: 20160111
